FAERS Safety Report 23087375 (Version 1)
Quarter: 2023Q4

REPORT INFORMATION
  Report Type: Spontaneous
  Country: BA (occurrence: BA)
  Receive Date: 20231020
  Receipt Date: 20231020
  Transmission Date: 20240110
  Serious: Yes (Hospitalization, Other)
  Sender: FDA-Public Use
  Company Number: BA-SANDOZ-SDZ2023BA043401

PATIENT
  Age: 76 Year
  Sex: Female

DRUGS (1)
  1. PEGFILGRASTIM [Suspect]
     Active Substance: PEGFILGRASTIM
     Indication: Product used for unknown indication
     Dosage: UNK
     Route: 065

REACTIONS (2)
  - Neutropenia [Unknown]
  - Febrile neutropenia [Unknown]
